FAERS Safety Report 6414730-3 (Version None)
Quarter: 2009Q4

REPORT INFORMATION
  Report Type: 
  Country: None (occurrence: None)
  Receive Date: 20091026
  Receipt Date: 20091016
  Transmission Date: 20100525
  Serious: Yes (Other)
  Sender: FDA-Public Use
  Company Number: US-ABBOTT-09P-163-0602984-00

PATIENT
  Age: 83 Year
  Sex: Female
  Weight: 49.94 kg

DRUGS (8)
  1. ERYTHROMYCIN [Suspect]
     Indication: CELLULITIS
     Route: 048
  2. SULFAMETHOXAZOLE AND TRIMETHOPRIM [Suspect]
     Indication: CELLULITIS
     Dosage: 800/160MG
     Route: 048
     Dates: start: 20090324, end: 20090324
  3. LEVAQUIN [Suspect]
     Indication: CELLULITIS
  4. PREDNISONE TAB [Suspect]
     Indication: DRUG USE FOR UNKNOWN INDICATION
  5. ACTONEL [Concomitant]
     Indication: DRUG USE FOR UNKNOWN INDICATION
  6. PREMARIN [Concomitant]
     Indication: DRUG USE FOR UNKNOWN INDICATION
  7. BENACAR [Concomitant]
     Indication: DRUG USE FOR UNKNOWN INDICATION
  8. CALCIUM [Concomitant]
     Indication: DRUG USE FOR UNKNOWN INDICATION

REACTIONS (1)
  - DRUG HYPERSENSITIVITY [None]
